FAERS Safety Report 11746692 (Version 2)
Quarter: 2015Q4

REPORT INFORMATION
  Report Type: Spontaneous
  Country: IT (occurrence: IT)
  Receive Date: 20151117
  Receipt Date: 20151120
  Transmission Date: 20160304
  Serious: Yes (Hospitalization)
  Sender: FDA-Public Use
  Company Number: IT-SA-2015SA179987

PATIENT
  Age: 57 Year
  Sex: Male

DRUGS (3)
  1. CLOPIDOGREL BISULFATE. [Suspect]
     Active Substance: CLOPIDOGREL BISULFATE
     Indication: CAROTID ARTERY DISSECTION
     Route: 048
     Dates: start: 20150815, end: 20150911
  2. ZYLLT [Concomitant]
     Active Substance: CLOPIDOGREL BISULFATE
     Dates: end: 20151009
  3. CLOPIDOGREL BISULFATE. [Suspect]
     Active Substance: CLOPIDOGREL BISULFATE
     Indication: CAROTID ARTERY DISSECTION
     Route: 048
     Dates: end: 20151028

REACTIONS (2)
  - Paraesthesia [Recovering/Resolving]
  - Headache [Recovering/Resolving]

NARRATIVE: CASE EVENT DATE: 20151009
